FAERS Safety Report 12964869 (Version 2)
Quarter: 2016Q4

REPORT INFORMATION
  Report Type: Spontaneous
  Country: US (occurrence: US)
  Receive Date: 20161122
  Receipt Date: 20161124
  Transmission Date: 20170207
  Serious: No
  Sender: FDA-Public Use
  Company Number: US-PFIZER INC-2016534030

PATIENT
  Sex: Male

DRUGS (1)
  1. LYRICA [Suspect]
     Active Substance: PREGABALIN
     Indication: NEUROPATHY PERIPHERAL
     Dosage: 50 MG, UNK

REACTIONS (7)
  - Paraesthesia [Recovered/Resolved]
  - Feeling jittery [Unknown]
  - Insomnia [Unknown]
  - Drug ineffective [Unknown]
  - Depression [Unknown]
  - Feeling abnormal [Recovered/Resolved]
  - Scratch [Recovered/Resolved]
